FAERS Safety Report 18330211 (Version 1)
Quarter: 2020Q3

REPORT INFORMATION
  Report Type: Spontaneous
  Country: FR (occurrence: FR)
  Receive Date: 20200930
  Receipt Date: 20200930
  Transmission Date: 20201103
  Serious: Yes (Hospitalization, Other)
  Sender: FDA-Public Use
  Company Number: NVSC2020FR261385

PATIENT
  Age: 46 Year
  Sex: Female

DRUGS (4)
  1. CYPROTERONE ACETATE [Suspect]
     Active Substance: CYPROTERONE ACETATE
     Indication: HORMONE REPLACEMENT THERAPY
     Dosage: 50 MG, QD
     Route: 048
  2. CYPROTERONE ACETATE [Suspect]
     Active Substance: CYPROTERONE ACETATE
     Indication: ANDROGENETIC ALOPECIA
  3. ESTRADIOL. [Suspect]
     Active Substance: ESTRADIOL
     Indication: ANDROGENETIC ALOPECIA
  4. ESTRADIOL. [Suspect]
     Active Substance: ESTRADIOL
     Indication: HORMONE THERAPY
     Dosage: 50 MG, QD
     Route: 065

REACTIONS (3)
  - Ischaemic stroke [Not Recovered/Not Resolved]
  - Meningioma [Not Recovered/Not Resolved]
  - Paraesthesia [Not Recovered/Not Resolved]
